FAERS Safety Report 10051752 (Version 2)
Quarter: 2014Q2

REPORT INFORMATION
  Report Type: Report from Study
  Country: VE (occurrence: VE)
  Receive Date: 20140401
  Receipt Date: 20140521
  Transmission Date: 20141212
  Serious: Yes (Other)
  Sender: FDA-Public Use
  Company Number: VE-ABBVIE-14P-178-1216896-00

PATIENT
  Age: 52 Year
  Sex: Male

DRUGS (3)
  1. HUMIRA [Suspect]
     Indication: PSORIASIS
     Route: 058
     Dates: start: 2011, end: 20140314
  2. HYPOGLYCEMIC [Concomitant]
     Indication: DIABETES MELLITUS
  3. ANTI HYPERTENSIVE [Concomitant]
     Indication: HYPERTENSION

REACTIONS (3)
  - Tuberculin test positive [Recovered/Resolved]
  - Guillain-Barre syndrome [Recovering/Resolving]
  - Muscular weakness [Not Recovered/Not Resolved]
